FAERS Safety Report 15857406 (Version 1)
Quarter: 2019Q1

REPORT INFORMATION
  Report Type: Spontaneous
  Country: US (occurrence: US)
  Receive Date: 20190122
  Receipt Date: 20190122
  Transmission Date: 20190417
  Serious: Yes (Disabling)
  Sender: FDA-Public Use
  Company Number: None

PATIENT
  Age: 75 Year
  Sex: Female
  Weight: 96.75 kg

DRUGS (1)
  1. VALSARTAN 320MG TABLETS [Suspect]
     Active Substance: VALSARTAN
     Indication: HYPERTENSION
     Dosage: ?          QUANTITY:1 TABLET(S);?
     Route: 048
     Dates: start: 20161001, end: 20190118

REACTIONS (3)
  - Palpitations [None]
  - Recalled product [None]
  - Abdominal pain [None]

NARRATIVE: CASE EVENT DATE: 20181204
